FAERS Safety Report 10548336 (Version 1)
Quarter: 2014Q4

REPORT INFORMATION
  Report Type: Spontaneous
  Country: US (occurrence: None)
  Receive Date: 20141027
  Receipt Date: 20141027
  Transmission Date: 20150529
  Serious: Yes (Other)
  Sender: FDA-Public Use
  Company Number: None

PATIENT
  Age: 68 Year
  Sex: Female
  Weight: 74.84 kg

DRUGS (2)
  1. TRAMADOL [Suspect]
     Active Substance: TRAMADOL
     Route: 048
     Dates: start: 20140712, end: 20140930
  2. TRAMADOL [Suspect]
     Active Substance: TRAMADOL
     Indication: NEUROPATHY PERIPHERAL
     Route: 048
     Dates: start: 20140712, end: 20140930

REACTIONS (11)
  - Dizziness [None]
  - Insomnia [None]
  - Neuralgia [None]
  - Palpitations [None]
  - Hypophagia [None]
  - Feeling abnormal [None]
  - Hypertension [None]
  - Hyperhidrosis [None]
  - Crying [None]
  - Vomiting [None]
  - Fall [None]

NARRATIVE: CASE EVENT DATE: 20140714
